FAERS Safety Report 10362161 (Version 1)
Quarter: 2014Q3

REPORT INFORMATION
  Report Type: Spontaneous
  Country: JP (occurrence: JP)
  Receive Date: 20140805
  Receipt Date: 20140805
  Transmission Date: 20150326
  Serious: Yes (Hospitalization, Other)
  Sender: FDA-Public Use
  Company Number: JP-JNJFOC-20140718278

PATIENT

DRUGS (2)
  1. RISPERDAL [Suspect]
     Active Substance: RISPERIDONE
     Indication: PRODUCT USED FOR UNKNOWN INDICATION
     Route: 048
  2. RISPERDAL [Suspect]
     Active Substance: RISPERIDONE
     Indication: PRODUCT USED FOR UNKNOWN INDICATION
     Dosage: IN THE MORNING AND IN THE EVENING
     Route: 048

REACTIONS (7)
  - Fall [Unknown]
  - Posture abnormal [Unknown]
  - Gait disturbance [Unknown]
  - Loss of consciousness [Recovering/Resolving]
  - Memory impairment [Unknown]
  - Mental disorder [Unknown]
  - Hospitalisation [Unknown]
